FAERS Safety Report 19257780 (Version 1)
Quarter: 2021Q2

REPORT INFORMATION
  Report Type: Spontaneous
  Country: CN (occurrence: CN)
  Receive Date: 20210514
  Receipt Date: 20210514
  Transmission Date: 20210717
  Serious: Yes (Other)
  Sender: FDA-Public Use
  Company Number: CN-ROCHE-2827803

PATIENT
  Age: 44 Year
  Sex: Male

DRUGS (11)
  1. DOXORUBICIN [Concomitant]
     Active Substance: DOXORUBICIN
     Indication: EXTRANODAL MARGINAL ZONE B-CELL LYMPHOMA (MALT TYPE)
     Dosage: ON 11 SEP 2015, 01 OCT 2015, ON 29 OCT 2015, 18 NOV 2015. 4 CYCLES OF R?CHOP REGIMEN
     Dates: start: 20150911
  2. MABTHERA [Suspect]
     Active Substance: RITUXIMAB
     Indication: EXTRANODAL MARGINAL ZONE B-CELL LYMPHOMA (MALT TYPE)
     Dosage: ON 30 JUL 2015, 19 AUG 2015.  2 CYCLES OF R?COP REGIMEN
     Route: 065
     Dates: start: 20150730
  3. VINCRISTINE [Concomitant]
     Active Substance: VINCRISTINE
     Dosage: ON 11 SEP 2015, 01 OCT 2015, ON 29 OCT 2015, 18 NOV 2015. 4 CYCLES OF R?CHOP REGIMEN
     Dates: start: 20150911
  4. PREDNISONE. [Concomitant]
     Active Substance: PREDNISONE
     Indication: EXTRANODAL MARGINAL ZONE B-CELL LYMPHOMA (MALT TYPE)
  5. PREDNISONE. [Concomitant]
     Active Substance: PREDNISONE
     Dosage: ON 30 JUL 2015, 19 AUG 2015.  2 CYCLES OF R?COP REGIMEN
     Dates: start: 20150730
  6. CICLOSPORIN [Concomitant]
     Active Substance: CYCLOSPORINE
     Indication: EXTRANODAL MARGINAL ZONE B-CELL LYMPHOMA (MALT TYPE)
  7. MABTHERA [Suspect]
     Active Substance: RITUXIMAB
     Dosage: ON 11 SEP 2015, 01 OCT 2015, ON 29 OCT 2015, 18 NOV 2015. 4 CYCLES OF R?CHOP REGIMEN
     Route: 065
     Dates: start: 20150911
  8. CYCLOPHOSPHAMIDE. [Concomitant]
     Active Substance: CYCLOPHOSPHAMIDE
     Indication: EXTRANODAL MARGINAL ZONE B-CELL LYMPHOMA (MALT TYPE)
     Dosage: ON 30 JUL 2015, 19 AUG 2015.  2 CYCLES OF R?COP REGIMEN
     Dates: start: 20150730
  9. CYCLOPHOSPHAMIDE. [Concomitant]
     Active Substance: CYCLOPHOSPHAMIDE
     Dosage: ON 11 SEP 2015, 01 OCT 2015, ON 29 OCT 2015, 18 NOV 2015. 4 CYCLES OF R?CHOP REGIMEN
     Dates: start: 20150911
  10. VINCRISTINE [Concomitant]
     Active Substance: VINCRISTINE
     Indication: EXTRANODAL MARGINAL ZONE B-CELL LYMPHOMA (MALT TYPE)
     Dosage: ON 30 JUL 2015, 19 AUG 2015.  2 CYCLES OF R?COP REGIMEN
     Dates: start: 20150730
  11. PREDNISONE. [Concomitant]
     Active Substance: PREDNISONE
     Dosage: ON 11 SEP 2015, 01 OCT 2015, ON 29 OCT 2015, 18 NOV 2015. 4 CYCLES OF R?CHOP REGIMEN
     Dates: start: 20150911

REACTIONS (2)
  - Off label use [Unknown]
  - Proteinuria [Unknown]
